FAERS Safety Report 8148654 (Version 3)
Quarter: 2013Q2

REPORT INFORMATION
  Report Type: Spontaneous
  Country: US (occurrence: US)
  Receive Date: 20110922
  Receipt Date: 20130409
  Transmission Date: 20140414
  Serious: Yes (Other)
  Sender: FDA-Public Use
  Company Number: US-ASTRAZENECA-2011SE12646

PATIENT
  Age: 357 Month
  Sex: Female

DRUGS (12)
  1. SEROQUEL [Suspect]
     Dosage: 25-100 MG
     Route: 048
     Dates: start: 20050419
  2. SEROQUEL [Suspect]
     Route: 048
     Dates: start: 20070907
  3. LAMICTAL [Concomitant]
     Dates: start: 20070723
  4. WELLBUTRIN XL [Concomitant]
     Dates: start: 20061026
  5. WELLBUTRIN XL [Concomitant]
     Dates: start: 20070723
  6. ZOLPIDEM [Concomitant]
     Dates: start: 20070727
  7. TRI-SPRINTEC [Concomitant]
     Dates: start: 20070807
  8. LORAZEPAM [Concomitant]
     Dates: start: 20070807
  9. AMITRIPTYLINE [Concomitant]
     Dates: start: 20070820
  10. ADDERALL XR [Concomitant]
     Dates: start: 20050419
  11. MEDROXYPR AC [Concomitant]
     Dates: start: 20050627
  12. LEXAPRO [Concomitant]
     Dates: start: 20050419

REACTIONS (3)
  - Pancreatitis [Unknown]
  - Diabetic coma [Unknown]
  - Type 2 diabetes mellitus [Unknown]
